FAERS Safety Report 4348173-3 (Version None)
Quarter: 2004Q1

REPORT INFORMATION
  Report Type: 
  Country: None (occurrence: None)
  Receive Date: 20040325
  Receipt Date: 20040211
  Transmission Date: 20041129
  Serious: No
  Sender: FDA-Public Use
  Company Number: USA040259135

PATIENT
  Age: 73 Year
  Sex: Female
  Weight: 59 kg

DRUGS (7)
  1. FORTEO [Suspect]
     Indication: OSTEOPOROSIS
     Dosage: 20 UG/1 DAY
     Dates: start: 20031101
  2. NEXIUM [Concomitant]
  3. VERAPAMIL [Concomitant]
  4. HAZAAR [Concomitant]
  5. LANOXIN [Concomitant]
  6. LEVOTHYROXINE [Concomitant]
  7. VICODIN [Concomitant]

REACTIONS (5)
  - ABDOMINAL PAIN UPPER [None]
  - CONSTIPATION [None]
  - FLATULENCE [None]
  - MUSCLE CRAMP [None]
  - MUSCULAR WEAKNESS [None]
